FAERS Safety Report 5125775-8 (Version None)
Quarter: 2006Q3

REPORT INFORMATION
  Report Type: 
  Country: None (occurrence: None)
  Receive Date: 20060815
  Receipt Date: 20051006
  Transmission Date: 20061208
  Serious: Yes (Other)
  Sender: FDA-Public Use
  Company Number: 2005138538

PATIENT
  Age: 39 Year
  Sex: Female
  Weight: 64.8644 kg

DRUGS (1)
  1. ROGAINE [Suspect]
     Indication: HYPOTRICHOSIS
     Dosage: 1 ML AND A LITTLE MORE TWICE A  DAY, TOPICAL
     Route: 061
     Dates: start: 20050921, end: 20051003

REACTIONS (2)
  - DIZZINESS [None]
  - HEART RATE INCREASED [None]
